FAERS Safety Report 10421794 (Version 2)
Quarter: 2014Q3

REPORT INFORMATION
  Report Type: Spontaneous
  Country: US (occurrence: US)
  Receive Date: 20140901
  Receipt Date: 20140904
  Transmission Date: 20150326
  Serious: Yes (Other)
  Sender: FDA-Public Use
  Company Number: US-ROCHE-1453895

PATIENT
  Age: 60 Year
  Sex: Female
  Weight: 129.94 kg

DRUGS (12)
  1. WELLBUTRIN [Concomitant]
     Active Substance: BUPROPION HYDROCHLORIDE
     Route: 048
  2. TYLENOL [Concomitant]
     Active Substance: ACETAMINOPHEN
     Dosage: TWICE DAILYX3 DAYS POT CHEMO
     Route: 048
  3. CINNAMON. [Concomitant]
     Active Substance: CINNAMON
     Dosage: DAILY 1 DOSE
     Route: 048
  4. ORACEA [Concomitant]
     Active Substance: DOXYCYCLINE
     Route: 048
  5. COENZYME Q-10 [Concomitant]
     Dosage: 1 DOSE
     Route: 048
  6. OMEPRAZOLE. [Concomitant]
     Active Substance: OMEPRAZOLE
     Route: 048
  7. ALLOPURINOL. [Concomitant]
     Active Substance: ALLOPURINOL
     Route: 048
  8. NORVASC [Concomitant]
     Active Substance: AMLODIPINE BESYLATE
     Route: 048
  9. LASIX [Concomitant]
     Active Substance: FUROSEMIDE
     Route: 048
  10. CHLORAMBUCIL [Concomitant]
     Active Substance: CHLORAMBUCIL
     Route: 048
  11. GAZYVA [Suspect]
     Active Substance: OBINUTUZUMAB
     Indication: CHRONIC LYMPHOCYTIC LEUKAEMIA
     Dosage: LAST DOSE PRIOR TO ONSET OF SAE: 03/JUN/2014
     Route: 065
     Dates: start: 20140327, end: 20140815
  12. ATIVAN [Concomitant]
     Active Substance: LORAZEPAM
     Dosage: 1 TAB NEEDED FOR ANXIETY
     Route: 048

REACTIONS (7)
  - Speech disorder [Recovered/Resolved]
  - Gait disturbance [Recovered/Resolved]
  - Dysphemia [Recovered/Resolved]
  - Drug hypersensitivity [Unknown]
  - Dysarthria [Recovered/Resolved]
  - Balance disorder [Unknown]
  - Coordination abnormal [Unknown]

NARRATIVE: CASE EVENT DATE: 20140608
